FAERS Safety Report 19686600 (Version 1)
Quarter: 2021Q3

REPORT INFORMATION
  Report Type: Report from Study
  Country: US (occurrence: US)
  Receive Date: 20210811
  Receipt Date: 20210811
  Transmission Date: 20211014
  Serious: Yes (Hospitalization)
  Sender: FDA-Public Use
  Company Number: US-JNJFOC-20210810053

PATIENT
  Age: 71 Year
  Sex: Female
  Weight: 88.53 kg

DRUGS (4)
  1. OPSUMIT [Suspect]
     Active Substance: MACITENTAN
     Indication: PULMONARY ARTERIAL HYPERTENSION
     Dosage: OPSUMIT 10MG ORALLY DAILY
     Route: 048
  2. TADALAFIL. [Concomitant]
     Active Substance: TADALAFIL
  3. OFEV [Concomitant]
     Active Substance: NINTEDANIB
  4. UPTRAVI [Suspect]
     Active Substance: SELEXIPAG
     Indication: PULMONARY ARTERIAL HYPERTENSION
     Dosage: UPTRAVI 1400 MCG ORALLY 2 TIMES DAILY
     Route: 048

REACTIONS (2)
  - Syncope [Unknown]
  - Pneumonia [Unknown]

NARRATIVE: CASE EVENT DATE: 20210731
